FAERS Safety Report 18956432 (Version 11)
Quarter: 2022Q1

REPORT INFORMATION
  Report Type: Spontaneous
  Country: JP (occurrence: JP)
  Receive Date: 20210302
  Receipt Date: 20220314
  Transmission Date: 20220424
  Serious: Yes (Death, Hospitalization, Other)
  Sender: FDA-Public Use
  Company Number: JP-BRISTOL-MYERS SQUIBB COMPANY-BMS-2021-016669

PATIENT
  Age: 74 Year
  Sex: Male
  Weight: 52 kg

DRUGS (10)
  1. OPDIVO [Suspect]
     Active Substance: NIVOLUMAB
     Indication: Non-small cell lung cancer recurrent
     Dosage: 360 MILLIGRAM
     Route: 041
     Dates: start: 20201204, end: 20210115
  2. YERVOY [Suspect]
     Active Substance: IPILIMUMAB
     Indication: Non-small cell lung cancer recurrent
     Dosage: 50 MILLIGRAM
     Route: 041
     Dates: start: 20201204, end: 20210115
  3. DEXTROMETHORPHAN HYDROBROMIDE\LYSOZYME HYDROCHLORIDE\POTASSIUM CRESOLS [Concomitant]
     Active Substance: DEXTROMETHORPHAN HYDROBROMIDE\LYSOZYME HYDROCHLORIDE\POTASSIUM CRESOLSULFONATE
     Indication: Non-small cell lung cancer recurrent
     Dosage: 30 MILLIGRAM, Q8H
     Route: 048
     Dates: start: 20201125, end: 20210205
  4. DECADRON [Concomitant]
     Active Substance: DEXAMETHASONE
     Indication: Non-small cell lung cancer recurrent
     Dosage: 1 MILLIGRAM, CUMULATIVE DOSE TO FIRST REACTION 32.5 MILLIGRAM
     Route: 048
  5. DECADRON [Concomitant]
     Active Substance: DEXAMETHASONE
     Dosage: 0.5 MILLIGRAM, QD
     Route: 048
     Dates: start: 20201125, end: 20210205
  6. FAMOTIDINE [Concomitant]
     Active Substance: FAMOTIDINE
     Indication: Prophylaxis
     Dosage: 20 MILLIGRAM, QD
     Route: 048
     Dates: start: 20201125, end: 20210205
  7. ETODOLAC [Concomitant]
     Active Substance: ETODOLAC
     Indication: Non-small cell lung cancer recurrent
     Dosage: 300 MILLIGRAM, Q12H
     Route: 048
     Dates: start: 20201125, end: 20201218
  8. HUSCODE [Concomitant]
     Active Substance: CHLORPHENIRAMINE MALEATE\DIHYDROCODEINE PHOSPHATE\METHYLEPHEDRINE HYDROCHLORIDE, DL-
     Indication: Non-small cell lung cancer recurrent
     Dosage: 3 DOSAGE FORM, Q8H
     Route: 048
     Dates: start: 20201125, end: 20210205
  9. CALONAL [Concomitant]
     Active Substance: ACETAMINOPHEN
     Indication: Non-small cell lung cancer recurrent
     Dosage: 400 MILLIGRAM; 1-4 TIMES/DAY
     Route: 048
     Dates: start: 20201125, end: 20210205
  10. SULFAMETHOXAZOLE\TRIMETHOPRIM [Concomitant]
     Active Substance: SULFAMETHOXAZOLE\TRIMETHOPRIM
     Indication: Prophylaxis
     Dosage: 1 DOSAGE FORM, QD
     Route: 048
     Dates: start: 20210205, end: 20210205

REACTIONS (10)
  - Interstitial lung disease [Fatal]
  - Restlessness [Not Recovered/Not Resolved]
  - Hypercalcaemia [Recovering/Resolving]
  - Adrenal insufficiency [Not Recovered/Not Resolved]
  - Malignant neoplasm progression [Unknown]
  - Hypopituitarism [Not Recovered/Not Resolved]
  - Diarrhoea [Recovered/Resolved]
  - Pyrexia [Recovered/Resolved]
  - Cough [Recovering/Resolving]
  - Hypophysitis [Unknown]

NARRATIVE: CASE EVENT DATE: 20201209
